FAERS Safety Report 8106949-0 (Version None)
Quarter: 2012Q1

REPORT INFORMATION
  Report Type: 
  Country: None (occurrence: None)
  Receive Date: 20120202
  Receipt Date: 20120120
  Transmission Date: 20120608
  Serious: Yes (Life-Threatening, Hospitalization, Other)
  Sender: FDA-Public Use
  Company Number: AU-CELGENEUS-008-20785-11081648

PATIENT
  Sex: Female

DRUGS (8)
  1. MELPHALAN HYDROCHLORIDE [Concomitant]
     Indication: MULTIPLE MYELOMA
     Route: 065
  2. PREDNISONE TAB [Concomitant]
     Indication: MULTIPLE MYELOMA
     Route: 065
  3. BONEFOS [Concomitant]
     Dosage: 2 TABS
     Route: 065
  4. PANTOPRAZOLE [Concomitant]
     Indication: GASTRITIS
     Dosage: 1 TAB
     Route: 065
  5. THALIDOMIDE [Suspect]
     Indication: MULTIPLE MYELOMA
     Dosage: 100 MILLIGRAM
     Route: 048
     Dates: start: 20090203, end: 20100106
  6. ENALAPRIL MALEATE [Concomitant]
     Route: 065
  7. OSTELIN [Concomitant]
     Dosage: 2 TABLET
     Route: 065
  8. VITAMIN D [Concomitant]
     Indication: VITAMIN D DEFICIENCY
     Route: 065

REACTIONS (5)
  - COLON CANCER STAGE II [None]
  - PERIPHERAL SENSORY NEUROPATHY [None]
  - RENAL FAILURE ACUTE [None]
  - PSOAS ABSCESS [None]
  - FEMORAL NECK FRACTURE [None]
